FAERS Safety Report 22343848 (Version 2)
Quarter: 2023Q2

REPORT INFORMATION
  Report Type: Other
  Country: GB (occurrence: None)
  Receive Date: 20230519
  Receipt Date: 20230530
  Transmission Date: 20230722
  Serious: Yes (Other)
  Sender: FDA-Public Use
  Company Number: GB-ROCHE-3350338

PATIENT
  Age: 85 Year
  Sex: Female

DRUGS (1)
  1. FARICIMAB [Suspect]
     Active Substance: FARICIMAB
     Indication: Neovascular age-related macular degeneration
     Dosage: ON 22/MAR/2023, TOOK THE MOST RECENT DOSE
     Route: 050
     Dates: start: 20230119

REACTIONS (4)
  - Corneal endothelial microscopy [Recovered/Resolved]
  - Visual impairment [Recovered/Resolved]
  - Eye haemorrhage [Recovered/Resolved]
  - Iridocyclitis [Unknown]

NARRATIVE: CASE EVENT DATE: 20230418
